FAERS Safety Report 24348438 (Version 3)
Quarter: 2024Q4

REPORT INFORMATION
  Report Type: Spontaneous
  Country: JP (occurrence: JP)
  Receive Date: 20240923
  Receipt Date: 20241022
  Transmission Date: 20250114
  Serious: Yes (Hospitalization, Other)
  Sender: ABBVIE
  Company Number: JP-ABBVIE-5931298

PATIENT
  Age: 58 Year
  Sex: Female
  Weight: 82 kg

DRUGS (8)
  1. RINVOQ [Suspect]
     Active Substance: UPADACITINIB
     Indication: Rheumatoid arthritis
     Dosage: 7.5 MILLIGRAM
     Route: 048
     Dates: start: 20220801
  2. METHOTREXATE [Concomitant]
     Active Substance: METHOTREXATE
     Indication: Rheumatoid arthritis
     Dosage: 6 MG
  3. METHOTREXATE [Concomitant]
     Active Substance: METHOTREXATE
     Indication: Rheumatoid arthritis
     Dosage: 8 MG
  4. BECLOMETHASONE DIPROPIONATE [Concomitant]
     Active Substance: BECLOMETHASONE DIPROPIONATE
     Indication: Asthma
     Dosage: 6 INHALATIONS/DAY (3 INHALATIONS/TIME)?FORM STRENGTH: 100
     Route: 055
  5. BENIDIPINE HYDROCHLORIDE [Concomitant]
     Active Substance: BENIDIPINE HYDROCHLORIDE
     Indication: Primary hyperaldosteronism
     Dosage: 4 MILLIGRAM
     Route: 048
  6. Indacaterol maleate and glycopyrronium bromide [Concomitant]
     Indication: Asthma
     Dosage: 1 CAPSULE
     Route: 055
  7. ESAXERENONE [Concomitant]
     Active Substance: ESAXERENONE
     Indication: Primary hyperaldosteronism
     Dosage: 2.5 MILLIGRAM
     Route: 048
  8. GLYCOPYRROLATE\INDACATEROL\MOMETASONE FUROATE [Concomitant]
     Active Substance: GLYCOPYRROLATE\INDACATEROL\MOMETASONE FUROATE
     Indication: Asthma
     Dosage: 1 CAPSULE
     Route: 055

REACTIONS (1)
  - Breast cancer [Recovering/Resolving]

NARRATIVE: CASE EVENT DATE: 20240709
